FAERS Safety Report 5699115-X (Version None)
Quarter: 2008Q2

REPORT INFORMATION
  Report Type: 
  Country: None (occurrence: None)
  Receive Date: 20080407
  Receipt Date: 20080407
  Transmission Date: 20081010
  Serious: Yes (Life-Threatening, Other)
  Sender: FDA-Public Use
  Company Number: None

PATIENT
  Age: 57 Year
  Sex: Male
  Weight: 92.9874 kg

DRUGS (4)
  1. ZOCOR [Suspect]
     Indication: BLOOD CHOLESTEROL INCREASED
     Dosage: 1 TABLET 2 X PER DAY PO
     Route: 048
     Dates: start: 19950228, end: 20031208
  2. GEMFIBROZIL [Suspect]
     Indication: BLOOD CHOLESTEROL INCREASED
     Dosage: 1 TABLET 2XPERDAY ATBEDTI PO
     Route: 048
     Dates: start: 20031208, end: 20050301
  3. LOVASTATIN [Concomitant]
  4. LIPITOR [Suspect]

REACTIONS (8)
  - ASTHENIA [None]
  - EPICONDYLITIS [None]
  - MUSCLE ATROPHY [None]
  - MYALGIA [None]
  - NEURALGIA [None]
  - PAIN IN EXTREMITY [None]
  - SLEEP DISORDER [None]
  - TREATMENT NONCOMPLIANCE [None]
